FAERS Safety Report 8199962-9 (Version None)
Quarter: 2012Q1

REPORT INFORMATION
  Report Type: 
  Country: None (occurrence: None)
  Receive Date: 20120306
  Receipt Date: 20120224
  Transmission Date: 20120608
  Serious: Yes (Hospitalization)
  Sender: FDA-Public Use
  Company Number: 2012NUEUSA00077

PATIENT
  Age: 98 Year
  Sex: Female
  Weight: 59.4 kg

DRUGS (10)
  1. LEVOTHYROXINE SODIUM [Concomitant]
  2. COREG [Concomitant]
  3. NUEDEXTA [Suspect]
     Indication: CRYING
     Dosage: 1 CAP, QD, ORAL, 1 CAP, QD, ORAL, ORAL
     Route: 048
     Dates: start: 20120101, end: 20120101
  4. NUEDEXTA [Suspect]
     Indication: CRYING
     Dosage: 1 CAP, QD, ORAL, 1 CAP, QD, ORAL, ORAL
     Route: 048
     Dates: start: 20120101, end: 20120101
  5. NUEDEXTA [Suspect]
     Indication: CRYING
     Dosage: 1 CAP, QD, ORAL, 1 CAP, QD, ORAL, ORAL
     Route: 048
     Dates: start: 20120101
  6. IMDUR [Concomitant]
  7. RISPERDAL [Concomitant]
  8. REMERON [Concomitant]
  9. CLONAZEPAM [Concomitant]
  10. COUMADIN [Concomitant]

REACTIONS (2)
  - DRUG INEFFECTIVE [None]
  - ATRIAL FIBRILLATION [None]
